FAERS Safety Report 8970817 (Version 1)
Quarter: 2012Q4

REPORT INFORMATION
  Report Type: Report from Study
  Country: US (occurrence: US)
  Receive Date: 20121218
  Receipt Date: 20121218
  Transmission Date: 20130627
  Serious: Yes (Hospitalization)
  Sender: FDA-Public Use
  Company Number: US-US-EMD SERONO, INC.-7181495

PATIENT
  Age: 34 Year
  Sex: Female

DRUGS (2)
  1. REBIF [Suspect]
     Indication: MULTIPLE SCLEROSIS
     Route: 058
     Dates: start: 20120927
  2. REBIF [Suspect]
     Route: 058
     Dates: start: 201211

REACTIONS (4)
  - Multiple sclerosis relapse [Unknown]
  - Vitamin D decreased [Unknown]
  - Dermatitis contact [Not Recovered/Not Resolved]
  - Injection site erythema [Not Recovered/Not Resolved]
